FAERS Safety Report 5123770-6 (Version None)
Quarter: 2006Q4

REPORT INFORMATION
  Report Type: 
  Country: None (occurrence: None)
  Receive Date: 20061010
  Receipt Date: 20060926
  Transmission Date: 20070319
  Serious: Yes (Life-Threatening)
  Sender: FDA-Public Use
  Company Number: JP-ROCHE-465035

PATIENT
  Age: 81 Year
  Sex: Female

DRUGS (5)
  1. ROCEPHIN [Suspect]
     Route: 041
     Dates: start: 20060906, end: 20060910
  2. MICARDIS [Concomitant]
     Route: 048
     Dates: start: 20060703
  3. OTHER MEDICATION [Concomitant]
     Dosage: DRUG REPORTED AS OGI-KENTYU-TO.
     Route: 048
     Dates: start: 20060703
  4. GASTER D [Concomitant]
     Route: 048
     Dates: start: 20060814
  5. PROMAC [Concomitant]
     Route: 048
     Dates: start: 20060822

REACTIONS (1)
  - STEVENS-JOHNSON SYNDROME [None]
